FAERS Safety Report 13988329 (Version 1)
Quarter: 2017Q3

REPORT INFORMATION
  Report Type: Spontaneous
  Country: US (occurrence: US)
  Receive Date: 20170919
  Receipt Date: 20170919
  Transmission Date: 20171128
  Serious: Yes (Other)
  Sender: FDA-Public Use
  Company Number: US-FERRINGPH-2017FE04385

PATIENT

DRUGS (1)
  1. STIMATE [Suspect]
     Active Substance: DESMOPRESSIN ACETATE
     Dosage: 2 SPRAYS AS DIRECTED
     Route: 065
     Dates: start: 20150328

REACTIONS (2)
  - Electrolyte depletion [Unknown]
  - Fatigue [Unknown]

NARRATIVE: CASE EVENT DATE: 20170815
